FAERS Safety Report 12107317 (Version 1)
Quarter: 2016Q1

REPORT INFORMATION
  Report Type: Report from Study
  Country: FR (occurrence: FR)
  Receive Date: 20160223
  Receipt Date: 20160223
  Transmission Date: 20160526
  Serious: Yes (Hospitalization)
  Sender: FDA-Public Use
  Company Number: PHHO2015FR021666

PATIENT
  Age: 54 Year
  Sex: Male
  Weight: 82 kg

DRUGS (14)
  1. VINCRISTINE [Suspect]
     Active Substance: VINCRISTINE
     Indication: CHEMOTHERAPY
     Route: 065
  2. MOTILIUM [Concomitant]
     Active Substance: DOMPERIDONE
     Indication: PRODUCT USED FOR UNKNOWN INDICATION
     Dosage: 1 C X 3/J
     Route: 048
     Dates: start: 20071119, end: 20071120
  3. STI571 [Suspect]
     Active Substance: IMATINIB MESYLATE
     Dosage: UNK
     Route: 048
     Dates: start: 20071217
  4. STI571 [Suspect]
     Active Substance: IMATINIB MESYLATE
     Dosage: 600 MG
     Route: 048
     Dates: start: 20071102, end: 20071113
  5. STI571 [Suspect]
     Active Substance: IMATINIB MESYLATE
     Dosage: 800 MG, UNK
     Route: 048
     Dates: start: 20071114, end: 20071126
  6. DEXAMETHASONE. [Concomitant]
     Active Substance: DEXAMETHASONE
     Indication: PRODUCT USED FOR UNKNOWN INDICATION
     Dosage: 4 MG, UNK
     Route: 065
  7. METHOTREXATE [Concomitant]
     Active Substance: METHOTREXATE
     Indication: ACUTE LYMPHOCYTIC LEUKAEMIA
     Dosage: 1 G/M2, UNK
     Route: 042
     Dates: start: 20071029, end: 20071029
  8. MOPRAL [Concomitant]
     Active Substance: OMEPRAZOLE SODIUM
     Indication: PRODUCT USED FOR UNKNOWN INDICATION
     Dosage: 2 DF, 2/J
     Route: 065
     Dates: start: 20071114
  9. LEXOMIL [Concomitant]
     Active Substance: BROMAZEPAM
     Indication: PRODUCT USED FOR UNKNOWN INDICATION
     Dosage: 1/2-1/2/-1
     Route: 048
     Dates: start: 20071112
  10. STI571 [Suspect]
     Active Substance: IMATINIB MESYLATE
     Indication: ACUTE LYMPHOCYTIC LEUKAEMIA
     Dosage: 400 MG, (2/J)
     Route: 048
     Dates: start: 20071029, end: 20071101
  11. ZELITREX [Concomitant]
     Active Substance: VALACYCLOVIR HYDROCHLORIDE
     Indication: PRODUCT USED FOR UNKNOWN INDICATION
     Dosage: 500 MG, X2/J
     Dates: start: 20071116
  12. KALEROID [Concomitant]
     Active Substance: POTASSIUM CHLORIDE
     Indication: PRODUCT USED FOR UNKNOWN INDICATION
     Dosage: 1000 MG, X 3/J
     Route: 048
     Dates: start: 20071114
  13. ARACYTINE [Suspect]
     Active Substance: CYTARABINE
     Indication: ACUTE LYMPHOCYTIC LEUKAEMIA
     Dosage: 3 G/M2, Q12H
     Route: 042
     Dates: start: 20071030, end: 20071101
  14. ARACYTINE [Suspect]
     Active Substance: CYTARABINE
     Dosage: UNK

REACTIONS (5)
  - Depression [Recovered/Resolved with Sequelae]
  - Asthenia [Recovered/Resolved with Sequelae]
  - Walking disability [Recovered/Resolved with Sequelae]
  - Cerebellar syndrome [Recovered/Resolved with Sequelae]
  - Amyotrophy [Recovered/Resolved with Sequelae]

NARRATIVE: CASE EVENT DATE: 20071118
